FAERS Safety Report 4665011-X (Version None)
Quarter: 2005Q2

REPORT INFORMATION
  Report Type: 
  Country: None (occurrence: None)
  Receive Date: 20050518
  Receipt Date: 20050518
  Transmission Date: 20051028
  Serious: Yes (Death)
  Sender: FDA-Public Use
  Company Number: None

PATIENT
  Age: 81 Year
  Sex: Male
  Weight: 68 kg

DRUGS (17)
  1. PREDNISONE [Suspect]
     Indication: CHRONIC OBSTRUCTIVE PULMONARY DISEASE
     Dosage: ORAL DAILY 40MG
     Route: 048
     Dates: start: 20041129, end: 20041215
  2. ALBUTEROL [Concomitant]
  3. LEVOFLOXACIN [Concomitant]
  4. O2 [Concomitant]
  5. RANITIDINE [Concomitant]
  6. INSULIN [Concomitant]
  7. METOLAZONE [Concomitant]
  8. ASPIRIN [Concomitant]
  9. THEOPHYLLINE [Concomitant]
  10. TRIAMIZOLONE INHALER [Concomitant]
  11. BRIMONIDINE [Concomitant]
  12. DIGOXIN [Concomitant]
  13. MAGNESIUM OXIDE [Concomitant]
  14. METOPROLOL [Concomitant]
  15. GEMFIBROZIL [Concomitant]
  16. OXYBUTYMIN XL [Concomitant]
  17. SPIRONOLACTONE [Concomitant]

REACTIONS (9)
  - COLLAPSE OF LUNG [None]
  - DIVERTICULAR PERFORATION [None]
  - GASTROINTESTINAL ULCER [None]
  - HELICOBACTER INFECTION [None]
  - LOSS OF CONSCIOUSNESS [None]
  - MALNUTRITION [None]
  - POST PROCEDURAL COMPLICATION [None]
  - RENAL FAILURE ACUTE [None]
  - UPPER GASTROINTESTINAL HAEMORRHAGE [None]
